FAERS Safety Report 8452055 (Version 2)
Quarter: 2012Q4

REPORT INFORMATION
  Report Type: 
  Country: FR (occurrence: FR)
  Receive Date: 20120309
  Receipt Date: 20120906
  Transmission Date: 20130627
  Serious: Yes (Death, Congenital Anomaly, Other)
  Sender: FDA-Public Use
  Company Number: FR-ABBOTT-12P-056-0910591-00

PATIENT
  Sex: Female

DRUGS (1)
  1. DEPAKINE TABLETS [Suspect]
     Indication: MATERNAL EXPOSURE TIMING UNSPECIFIED
     Route: 064

REACTIONS (3)
  - Abortion spontaneous [Fatal]
  - Foetal chromosome abnormality [Unknown]
  - Foetal exposure during pregnancy [Unknown]
